FAERS Safety Report 5490221-1 (Version None)
Quarter: 2007Q4

REPORT INFORMATION
  Report Type: 
  Country: None (occurrence: None)
  Receive Date: 20071018
  Receipt Date: 20071016
  Transmission Date: 20080405
  Serious: Yes (Disabling, Other)
  Sender: FDA-Public Use
  Company Number: US-MERCK-0709USA02461

PATIENT
  Age: 59 Year
  Sex: Male
  Weight: 141 kg

DRUGS (6)
  1. JANUVIA [Suspect]
     Indication: DIABETES MELLITUS
     Route: 048
     Dates: start: 20070529, end: 20070531
  2. LIPITOR [Concomitant]
     Route: 065
  3. ACTOS [Concomitant]
     Route: 065
     Dates: start: 20061201
  4. COUMADIN [Concomitant]
     Indication: CEREBROVASCULAR ACCIDENT
     Route: 065
  5. GLIPIZIDE [Concomitant]
     Route: 065
     Dates: start: 20050401, end: 20070529
  6. GLIPIZIDE [Concomitant]
     Route: 065
     Dates: start: 20070101

REACTIONS (4)
  - HEADACHE [None]
  - NASAL CONGESTION [None]
  - NAUSEA [None]
  - VOMITING [None]
